FAERS Safety Report 4487920-7 (Version None)
Quarter: 2004Q4

REPORT INFORMATION
  Report Type: 
  Country: None (occurrence: None)
  Receive Date: 20041022
  Receipt Date: 20041008
  Transmission Date: 20050328
  Serious: Yes (Life-Threatening, Hospitalization)
  Sender: FDA-Public Use
  Company Number: 2004-UK-00842UK

PATIENT
  Age: 34 Year
  Sex: Female

DRUGS (8)
  1. NEVIRAPINE (00015/0215/A) (NEVIRAPINE) [Suspect]
     Indication: HIV INFECTION
     Dosage: 1/2 TWICE PO
     Route: 048
     Dates: start: 20040630, end: 20040823
  2. STAVUDINE (STAVUDINE) [Suspect]
     Indication: HIV INFECTION
     Dates: start: 20040630, end: 20040823
  3. LAMIVUDINE (LAMIVUDINE) [Suspect]
     Indication: HIV INFECTION
     Dates: start: 20040630, end: 20040823
  4. BACTRIM [Concomitant]
  5. T4 (LEVOTHYROXINE SODIUM) [Concomitant]
  6. VIT B12 (FERROUS SULFATE/VIT B1/VIT B6/VIT B12) [Concomitant]
  7. FOLIC ACID [Concomitant]
  8. VITAMIN C (ASCORBIC ACID) [Concomitant]

REACTIONS (8)
  - DIARRHOEA [None]
  - DRUG INTERACTION [None]
  - GENERAL PHYSICAL HEALTH DETERIORATION [None]
  - HEPATIC FAILURE [None]
  - INTESTINAL ULCER [None]
  - STEVENS-JOHNSON SYNDROME [None]
  - TOXIC DILATATION OF COLON [None]
  - TOXIC EPIDERMAL NECROLYSIS [None]
